FAERS Safety Report 10227858 (Version 2)
Quarter: 2022Q3

REPORT INFORMATION
  Report Type: Spontaneous
  Country: US (occurrence: US)
  Receive Date: 20140610
  Receipt Date: 20220805
  Transmission Date: 20221026
  Serious: No
  Sender: FDA-Public Use
  Company Number: US-BAYER-2014-084680

PATIENT
  Sex: Male

DRUGS (1)
  1. BETASERON [Suspect]
     Active Substance: INTERFERON BETA-1B
     Indication: Multiple sclerosis
     Dosage: 0.25 MG, OW
     Route: 058

REACTIONS (5)
  - Migraine [None]
  - Full blood count abnormal [None]
  - Inappropriate schedule of product administration [None]
  - Product packaging quantity issue [None]
  - Gait disturbance [None]
